FAERS Safety Report 5502983-5 (Version None)
Quarter: 2007Q4

REPORT INFORMATION
  Report Type: 
  Country: None (occurrence: None)
  Receive Date: 20071029
  Receipt Date: 20071029
  Transmission Date: 20080405
  Serious: Yes (Other)
  Sender: FDA-Public Use
  Company Number: None

PATIENT
  Sex: Female
  Weight: 61 kg

DRUGS (8)
  1. OXACILLIN [Suspect]
     Indication: ABSCESS
     Dosage: 2GM  EVERY 6 HOURS  IV BOLUS
     Route: 040
     Dates: start: 20071002, end: 20071022
  2. OXACILLIN [Suspect]
     Indication: CELLULITIS
     Dosage: 2GM  EVERY 6 HOURS  IV BOLUS
     Route: 040
     Dates: start: 20071002, end: 20071022
  3. RIFAMPIN [Concomitant]
  4. PROZAC [Concomitant]
  5. LEVEMIR [Concomitant]
  6. VICODIN [Concomitant]
  7. IBUPROFEN [Concomitant]
  8. NOVOLOG [Concomitant]

REACTIONS (2)
  - PRURITUS GENERALISED [None]
  - RASH GENERALISED [None]
